FAERS Safety Report 25720103 (Version 7)
Quarter: 2025Q4

REPORT INFORMATION
  Report Type: Spontaneous
  Country: US (occurrence: US)
  Receive Date: 20250825
  Receipt Date: 20251105
  Transmission Date: 20260117
  Serious: No
  Sender: KARYOPHARM THERAPEUTICS
  Company Number: US-KARYOPHARM-2025KPT100642

PATIENT

DRUGS (15)
  1. SELINEXOR [Suspect]
     Active Substance: SELINEXOR
     Indication: Plasma cell myeloma refractory
     Dosage: 40 MG WEEKLY
     Route: 048
     Dates: start: 20250815, end: 2025
  2. SELINEXOR [Suspect]
     Active Substance: SELINEXOR
     Dosage: 40 MG ON DAYS 1 8 15 AND 22 OF A 28 DAY CYCLE
     Route: 048
     Dates: start: 2025, end: 2025
  3. SELINEXOR [Suspect]
     Active Substance: SELINEXOR
     Dosage: 60 MG WEEKLY ON DAYS 1 8 15 AND 22 OF A 28 DAY CYCLE
     Route: 048
     Dates: start: 20250926, end: 20250929
  4. SELINEXOR [Suspect]
     Active Substance: SELINEXOR
  5. ACYCLOVIR [Concomitant]
     Active Substance: ACYCLOVIR
  6. BENZONATATE [Concomitant]
     Active Substance: BENZONATATE
  7. DAPSONE [Concomitant]
     Active Substance: DAPSONE
  8. DOPTELET [Concomitant]
     Active Substance: AVATROMBOPAG MALEATE
  9. LEVOTHYROXINE [Concomitant]
     Active Substance: LEVOTHYROXINE
  10. OLANZAPINE [Concomitant]
     Active Substance: OLANZAPINE
  11. POMALYST [Concomitant]
     Active Substance: POMALIDOMIDE
  12. POSACONAZOLE [Concomitant]
     Active Substance: POSACONAZOLE
  13. PROCHLORPERAZINE [Concomitant]
     Active Substance: PROCHLORPERAZINE
  14. SCOPOLAMINE HYDROBROMIDE [Concomitant]
     Active Substance: SCOPOLAMINE HYDROBROMIDE
  15. TERAZOSIN HYDROCHLORIDE [Concomitant]
     Active Substance: TERAZOSIN HYDROCHLORIDE

REACTIONS (4)
  - Plasma cell myeloma [Unknown]
  - White blood cell count decreased [Recovered/Resolved]
  - Nausea [Unknown]
  - Product packaging difficult to open [Unknown]

NARRATIVE: CASE EVENT DATE: 20250801
